FAERS Safety Report 6057231-7 (Version None)
Quarter: 2009Q1

REPORT INFORMATION
  Report Type: 
  Country: None (occurrence: None)
  Receive Date: 20090129
  Receipt Date: 20080502
  Transmission Date: 20090719
  Serious: No
  Sender: FDA-Public Use
  Company Number: A0727055A

PATIENT
  Age: 22 Year
  Sex: Female
  Weight: 52.3 kg

DRUGS (6)
  1. WELLBUTRIN [Suspect]
     Indication: DRUG USE FOR UNKNOWN INDICATION
     Route: 048
  2. LUNESTA [Concomitant]
     Indication: INSOMNIA
     Dosage: 3MG AS REQUIRED
     Route: 048
     Dates: start: 20060501, end: 20071101
  3. YAZ [Concomitant]
  4. SUBOXONE [Concomitant]
  5. CLONAZEPAM [Concomitant]
  6. BENADRYL [Concomitant]

REACTIONS (1)
  - DRUG HYPERSENSITIVITY [None]
